FAERS Safety Report 7193703-X (Version None)
Quarter: 2010Q4

REPORT INFORMATION
  Report Type: 
  Country: None (occurrence: None)
  Receive Date: 20101223
  Receipt Date: 20100909
  Transmission Date: 20110411
  Serious: No
  Sender: FDA-Public Use
  Company Number: US-AMGEN-KDL437058

PATIENT

DRUGS (8)
  1. ENBREL [Suspect]
     Indication: PRODUCT USED FOR UNKNOWN INDICATION
     Dosage: 50 MG, QWK
     Route: 058
  2. DULOXETIME HYDROCHLORIDE [Concomitant]
     Dosage: 20 MG, UNK
  3. PRAVASTATIN SODIUM [Concomitant]
     Dosage: 40 MG, UNK
  4. ALPRAZOLAM [Concomitant]
     Dosage: 2 MG, UNK
  5. SUMATRIPTAN [Concomitant]
     Dosage: 100 MG, UNK
  6. RAMIPRIL [Concomitant]
     Dosage: 5 MG, UNK
  7. IBUPROFEN [Concomitant]
     Dosage: 200 MG, UNK
  8. EZETIMIBE [Concomitant]
     Dosage: 10 MG, UNK

REACTIONS (2)
  - BIOPSY LYMPH GLAND [None]
  - PSORIASIS [None]
